FAERS Safety Report 10423237 (Version 1)
Quarter: 2014Q3

REPORT INFORMATION
  Report Type: Spontaneous
  Country: ZA (occurrence: ZA)
  Receive Date: 20140902
  Receipt Date: 20140902
  Transmission Date: 20150326
  Serious: Yes (Death, Other)
  Sender: FDA-Public Use
  Company Number: ZA-NOVOPROD-420367

PATIENT
  Age: 84 Year
  Sex: Female

DRUGS (6)
  1. DORMONOCT [Concomitant]
     Active Substance: LOPRAZOLAM
     Route: 065
  2. DISPRIN [Concomitant]
     Active Substance: ASPIRIN
     Route: 065
  3. TAVALOXX [Concomitant]
     Route: 065
  4. NOVOMIX 30 FLEXPEN [Suspect]
     Active Substance: INSULIN ASPART
     Indication: DIABETES MELLITUS
     Route: 065
     Dates: end: 20140819
  5. NOVORAPID [Suspect]
     Active Substance: INSULIN ASPART
     Indication: PRODUCT USED FOR UNKNOWN INDICATION
     Route: 065
     Dates: end: 20140819
  6. PEARINDA PLUS [Concomitant]
     Route: 065

REACTIONS (2)
  - Death [Fatal]
  - Lung infection [Unknown]

NARRATIVE: CASE EVENT DATE: 20140819
